FAERS Safety Report 10692164 (Version 1)
Quarter: 2015Q1

REPORT INFORMATION
  Report Type: Report from Study
  Country: IT (occurrence: IT)
  Receive Date: 20150106
  Receipt Date: 20150106
  Transmission Date: 20150720
  Serious: Yes (Death)
  Sender: FDA-Public Use
  Company Number: IT-ROCHE-1517079

PATIENT

DRUGS (4)
  1. CEFTRIAXONE. [Suspect]
     Active Substance: CEFTRIAXONE
     Indication: NEOPLASM
  2. AMIKACIN [Suspect]
     Active Substance: AMIKACIN
     Indication: NEOPLASM
  3. CEFTRIAXONE. [Suspect]
     Active Substance: CEFTRIAXONE
     Indication: FEBRILE NEUTROPENIA
     Dosage: MAXIMAL DOSE 2 G/DAY
     Route: 065
  4. AMIKACIN [Suspect]
     Active Substance: AMIKACIN
     Indication: FEBRILE NEUTROPENIA
     Dosage: (MAXIMAL DOSE 1.5 G/DAY)
     Route: 065

REACTIONS (1)
  - Treatment failure [Fatal]
